FAERS Safety Report 6418303-8 (Version None)
Quarter: 2009Q4

REPORT INFORMATION
  Report Type: 
  Country: None (occurrence: None)
  Receive Date: 20091021
  Receipt Date: 20090616
  Transmission Date: 20100525
  Serious: No
  Sender: FDA-Public Use
  Company Number: ALL1-2009-01666

PATIENT
  Age: 41 Year
  Sex: Female
  Weight: 79.4 kg

DRUGS (1)
  1. VYVANSE [Suspect]
     Indication: ATTENTION DEFICIT/HYPERACTIVITY DISORDER
     Dosage: 70 MG, 1X/DAY:QD, ORAL
     Route: 048
     Dates: start: 20080601

REACTIONS (3)
  - DRUG INEFFECTIVE [None]
  - GENERALISED OEDEMA [None]
  - WEIGHT INCREASED [None]
